FAERS Safety Report 8188472-0 (Version None)
Quarter: 2012Q1

REPORT INFORMATION
  Report Type: 
  Country: None (occurrence: None)
  Receive Date: 20120306
  Receipt Date: 20120229
  Transmission Date: 20120608
  Serious: Yes (Hospitalization)
  Sender: FDA-Public Use
  Company Number: PHFR2012GB000624

PATIENT
  Sex: Male
  Weight: 70 kg

DRUGS (2)
  1. EXJADE [Suspect]
     Indication: THALASSAEMIA BETA
     Dosage: 1750 MG. DAILY
     Route: 048
     Dates: start: 20111027
  2. EXJADE [Suspect]
     Indication: IRON OVERLOAD

REACTIONS (1)
  - MOUTH ULCERATION [None]
